FAERS Safety Report 4321189-9 (Version None)
Quarter: 2004Q1

REPORT INFORMATION
  Report Type: 
  Country: None (occurrence: None)
  Receive Date: 20040322
  Receipt Date: 20040317
  Transmission Date: 20041129
  Serious: Yes (Hospitalization)
  Sender: FDA-Public Use
  Company Number: WAES 0403USA01571

PATIENT
  Sex: Female

DRUGS (2)
  1. VIOXX [Suspect]
     Route: 048
     Dates: start: 20040101, end: 20040101
  2. VIOXX [Suspect]
     Route: 048
     Dates: end: 20040101

REACTIONS (1)
  - CARDIAC FAILURE CONGESTIVE [None]
